FAERS Safety Report 24267156 (Version 5)
Quarter: 2024Q4

REPORT INFORMATION
  Report Type: Report from Study
  Country: US (occurrence: US)
  Receive Date: 20240830
  Receipt Date: 20241105
  Transmission Date: 20250115
  Serious: Yes (Hospitalization, Other)
  Sender: GILEAD
  Company Number: US-GILEAD-2024-0685618

PATIENT
  Age: 17 Year
  Sex: Female
  Weight: 72.6 kg

DRUGS (10)
  1. AMBRISENTAN [Suspect]
     Active Substance: AMBRISENTAN
     Indication: Pulmonary arterial hypertension
     Dosage: 10 MG, QD
     Route: 065
     Dates: start: 20231110
  2. AMBRISENTAN [Suspect]
     Active Substance: AMBRISENTAN
     Dosage: 10 MG, QD
     Route: 048
     Dates: start: 20240813
  3. TADALAFIL [Concomitant]
     Active Substance: TADALAFIL
     Dosage: 40 MG, QD
     Route: 048
     Dates: start: 20240813
  4. UPTRAVI [Concomitant]
     Active Substance: SELEXIPAG
  5. ASPIRIN [Concomitant]
     Active Substance: ASPIRIN
     Dosage: 81 MG, QD
     Route: 048
     Dates: start: 20240813
  6. FERROUS SULFATE [Concomitant]
     Active Substance: FERROUS SULFATE
     Dosage: 325 MG, QD
     Route: 048
  7. FLUOCINONIDE [Concomitant]
     Active Substance: FLUOCINONIDE
     Dosage: UNK, BID
     Route: 061
     Dates: start: 20240812
  8. GUANFACINE [Concomitant]
     Active Substance: GUANFACINE
     Dosage: 3 MG, QD
     Route: 048
     Dates: start: 20240813
  9. PANTOPRAZOLE [Concomitant]
     Active Substance: PANTOPRAZOLE
     Dosage: 20 MG, QD
     Route: 048
     Dates: start: 20240813
  10. VENLAFAXINE [Concomitant]
     Active Substance: VENLAFAXINE HYDROCHLORIDE
     Dosage: 112.5 MG, QD
     Route: 048
     Dates: start: 20240813

REACTIONS (11)
  - Catheterisation cardiac abnormal [Unknown]
  - Syncope [Recovered/Resolved]
  - Dizziness [Not Recovered/Not Resolved]
  - Pain in jaw [Unknown]
  - Headache [Recovering/Resolving]
  - Abdominal pain upper [Unknown]
  - Hypoaesthesia [Unknown]
  - Flushing [Recovering/Resolving]
  - Asthenia [Unknown]
  - Fatigue [Unknown]
  - Off label use [Not Recovered/Not Resolved]

NARRATIVE: CASE EVENT DATE: 20240809
